FAERS Safety Report 9756163 (Version 1)
Quarter: 2013Q4

REPORT INFORMATION
  Report Type: Spontaneous
  Country: US (occurrence: US)
  Receive Date: 20131213
  Receipt Date: 20131213
  Transmission Date: 20140711
  Serious: No
  Sender: FDA-Public Use
  Company Number: US-GLAXOSMITHKLINE-A1034036A

PATIENT
  Age: 50 Year
  Sex: Female

DRUGS (2)
  1. WALGREENS NICOTINE TRANSDERMAL SYSTEM PATCH CLEAR, 14MG [Suspect]
     Indication: EX-TOBACCO USER
     Dates: start: 20130716
  2. WALGREENS NICOTINE TRANSDERMAL SYSTEM PATCH CLEAR, 14MG [Suspect]
     Indication: EX-TOBACCO USER

REACTIONS (4)
  - Tension [Recovered/Resolved]
  - Irritability [Recovered/Resolved]
  - Product quality issue [Unknown]
  - Nightmare [Recovered/Resolved]
